FAERS Safety Report 8843796 (Version 2)
Quarter: 2012Q4

REPORT INFORMATION
  Report Type: 
  Country: US (occurrence: US)
  Receive Date: 20121016
  Receipt Date: 20121207
  Transmission Date: 20130627
  Serious: No
  Sender: FDA-Public Use
  Company Number: US-009507513-1210USA003448

PATIENT
  Age: 70 Year
  Sex: Male

DRUGS (3)
  1. PROPECIA [Suspect]
     Indication: ALOPECIA
     Dosage: 1 mg, qd
     Route: 048
     Dates: start: 1990
  2. PROPECIA [Suspect]
     Dosage: UNK
     Route: 048
  3. ROGAINE [Concomitant]

REACTIONS (1)
  - Therapeutic response decreased [Unknown]
